FAERS Safety Report 8205017-7 (Version None)
Quarter: 2012Q1

REPORT INFORMATION
  Report Type: 
  Country: None (occurrence: None)
  Receive Date: 20120309
  Receipt Date: 20120223
  Transmission Date: 20120608
  Serious: Yes (Other)
  Sender: FDA-Public Use
  Company Number: JP-2012-11914

PATIENT

DRUGS (1)
  1. PLETAL [Suspect]
     Dosage: , ORAL
     Route: 048

REACTIONS (1)
  - RENAL FAILURE ACUTE [None]
